FAERS Safety Report 9412295 (Version 1)
Quarter: 2013Q3

REPORT INFORMATION
  Report Type: Spontaneous
  Country: US (occurrence: US)
  Receive Date: 20130722
  Receipt Date: 20130722
  Transmission Date: 20140515
  Serious: Yes (Other)
  Sender: FDA-Public Use
  Company Number: US-PFIZER INC-2013209278

PATIENT
  Age: 33 Year
  Sex: Male

DRUGS (3)
  1. CELEBREX [Suspect]
     Indication: PAIN
     Dosage: UNK
  2. LYRICA [Suspect]
     Indication: PAIN
     Dosage: UNK
  3. VICODIN [Suspect]
     Indication: PAIN
     Dosage: UNK

REACTIONS (5)
  - Gastric ulcer [Unknown]
  - Oesophageal ulcer [Unknown]
  - Feeling abnormal [Unknown]
  - Lethargy [Unknown]
  - Malaise [Unknown]
